FAERS Safety Report 5566692-9 (Version None)
Quarter: 2007Q4

REPORT INFORMATION
  Report Type: 
  Country: None (occurrence: None)
  Receive Date: 20071217
  Receipt Date: 20071217
  Transmission Date: 20080405
  Serious: No
  Sender: FDA-Public Use
  Company Number: None

PATIENT
  Age: 22 Year
  Sex: Male

DRUGS (1)
  1. VIGAMOX [Suspect]
     Indication: CORRECTIVE LENS USER

REACTIONS (3)
  - DRUG INEFFECTIVE [None]
  - PHOTOPHOBIA [None]
  - ULCERATIVE KERATITIS [None]
